FAERS Safety Report 7408553-6 (Version None)
Quarter: 2011Q2

REPORT INFORMATION
  Report Type: 
  Country: None (occurrence: None)
  Receive Date: 20110401
  Receipt Date: 20110331
  Transmission Date: 20111010
  Serious: Yes (Other)
  Sender: FDA-Public Use
  Company Number: 1022556-2011-00010

PATIENT
  Age: 38 Year
  Sex: Female

DRUGS (1)
  1. ICY HOT BACK PATCH 5 CT [Suspect]
     Indication: MYALGIA
     Dosage: TOPICAL, ONCE
     Route: 061

REACTIONS (2)
  - SKIN EXFOLIATION [None]
  - DEVICE DIFFICULT TO USE [None]
